FAERS Safety Report 7239616-6 (Version None)
Quarter: 2011Q1

REPORT INFORMATION
  Report Type: 
  Country: None (occurrence: None)
  Receive Date: 20110122
  Receipt Date: 20110117
  Transmission Date: 20110831
  Serious: No
  Sender: FDA-Public Use
  Company Number: US-B.I. PHARMACEUTICALS,INC./RIDGEFIELD-2011-BP-01349BP

PATIENT
  Age: 86 Year
  Sex: Female

DRUGS (3)
  1. TRINATAL [Concomitant]
     Indication: PERIPHERAL VASCULAR DISORDER
  2. TAMOXIFEN [Concomitant]
     Indication: BREAST CANCER
  3. PRADAXA [Suspect]
     Indication: ATRIAL FIBRILLATION
     Dosage: 150 MG
     Route: 048
     Dates: start: 20110107

REACTIONS (1)
  - HEADACHE [None]
